FAERS Safety Report 12281290 (Version 1)
Quarter: 2016Q2

REPORT INFORMATION
  Report Type: Spontaneous
  Country: US (occurrence: None)
  Receive Date: 20160418
  Receipt Date: 20160418
  Transmission Date: 20160815
  Serious: Yes (Life-Threatening, Disabling, Other)
  Sender: FDA-Public Use
  Company Number: None

PATIENT
  Age: 54 Year
  Sex: Female
  Weight: 88.45 kg

DRUGS (8)
  1. OXYBUTININE [Concomitant]
     Active Substance: OXYBUTYNIN
  2. TRAMADOM [Concomitant]
  3. BIAXIN [Concomitant]
     Active Substance: CLARITHROMYCIN
  4. PHENERGAN [Concomitant]
     Active Substance: PROMETHAZINE HYDROCHLORIDE
  5. SUDAFED [Concomitant]
     Active Substance: PSEUDOEPHEDRINE HYDROCHLORIDE
  6. HYDROCORTISONE, 15 MG QUALITEST [Suspect]
     Active Substance: HYDROCORTISONE
     Indication: ADDISON^S DISEASE
     Route: 048
     Dates: start: 20160229, end: 20160415
  7. HTZ [Concomitant]
  8. MELOXICAM. [Concomitant]
     Active Substance: MELOXICAM

REACTIONS (8)
  - Headache [None]
  - Asthenia [None]
  - Reaction to drug excipients [None]
  - Abdominal pain upper [None]
  - Malaise [None]
  - Feeling abnormal [None]
  - Palpitations [None]
  - Product substitution issue [None]

NARRATIVE: CASE EVENT DATE: 20160229
